FAERS Safety Report 9897946 (Version 1)
Quarter: 2014Q1

REPORT INFORMATION
  Report Type: Spontaneous
  Country: US (occurrence: US)
  Receive Date: 20140214
  Receipt Date: 20140214
  Transmission Date: 20141002
  Serious: No
  Sender: FDA-Public Use
  Company Number: US-PFIZER INC-2014041324

PATIENT
  Sex: Female

DRUGS (2)
  1. PRISTIQ [Suspect]
     Indication: DEPRESSION
     Dosage: 50 MG, UNK
     Dates: start: 201401
  2. PRISTIQ [Suspect]
     Dosage: 100 MG, UNK

REACTIONS (3)
  - Agitation [Unknown]
  - Psychotic disorder [Unknown]
  - Drug ineffective [Unknown]
